FAERS Safety Report 7432132-8 (Version None)
Quarter: 2011Q2

REPORT INFORMATION
  Report Type: 
  Country: None (occurrence: None)
  Receive Date: 20110422
  Receipt Date: 20110415
  Transmission Date: 20111010
  Serious: Yes (Hospitalization)
  Sender: FDA-Public Use
  Company Number: JP-B.I. PHARMACEUTICALS,INC./RIDGEFIELD-2011-BP-10841NB

PATIENT
  Age: 68 Year
  Sex: Male

DRUGS (2)
  1. PRAZAXA [Suspect]
     Indication: ATRIAL FIBRILLATION
     Dosage: 220 MG
     Route: 048
     Dates: start: 20110407, end: 20110411
  2. CARBENIN [Suspect]
     Indication: PNEUMONIA
     Route: 042
     Dates: start: 20110404

REACTIONS (1)
  - INTERSTITIAL LUNG DISEASE [None]
